FAERS Safety Report 16915108 (Version 13)
Quarter: 2021Q2

REPORT INFORMATION
  Report Type: Spontaneous
  Country: US (occurrence: US)
  Receive Date: 20191014
  Receipt Date: 20210630
  Transmission Date: 20210716
  Serious: Yes (Other)
  Sender: FDA-Public Use
  Company Number: US-PFIZER INC-2019040305

PATIENT
  Age: 70 Year
  Sex: Female

DRUGS (3)
  1. PREMARIN [Suspect]
     Active Substance: ESTROGENS, CONJUGATED
     Dosage: UNK (STRENGTH: 0.5 G /QUANTITY FOR 90 DAYS: 3 TUBES)
  2. PREMARIN [Suspect]
     Active Substance: ESTROGENS, CONJUGATED
     Indication: VULVOVAGINAL DRYNESS
     Dosage: 0.5 G, 2X/WEEK (0.5 G 2 NIGHTS PER WEEK)
     Route: 067
  3. PREMARIN [Suspect]
     Active Substance: ESTROGENS, CONJUGATED
     Dosage: UNK STRENGTH: 625G,

REACTIONS (9)
  - Product prescribing error [Unknown]
  - Cough [Unknown]
  - Malaise [Unknown]
  - Cystitis [Unknown]
  - Intentional product misuse [Unknown]
  - Kidney infection [Unknown]
  - Product dispensing error [Unknown]
  - Breast cancer recurrent [Not Recovered/Not Resolved]
  - Fatigue [Unknown]
